FAERS Safety Report 7625696-2 (Version None)
Quarter: 2011Q3

REPORT INFORMATION
  Report Type: 
  Country: None (occurrence: None)
  Receive Date: 20110713
  Receipt Date: 20110704
  Transmission Date: 20111222
  Serious: Yes (Hospitalization)
  Sender: FDA-Public Use
  Company Number: 2010SP064708

PATIENT
  Age: 63 Year
  Sex: Male
  Weight: 113.5 kg

DRUGS (21)
  1. DEXAMETHASONE [Concomitant]
  2. RED BLOOD CELLS [Concomitant]
  3. TECTA [Concomitant]
  4. ASPIRIN [Concomitant]
  5. ASCORBIC ACID [Concomitant]
  6. HYDROMORPHONE HCL [Concomitant]
  7. IMOVANE [Concomitant]
  8. HYDRASENSE GENTLE MIST [Concomitant]
  9. LORAZEPAM [Concomitant]
  10. OXYGEN [Concomitant]
  11. LYRICA [Concomitant]
  12. NADOLOL [Concomitant]
  13. EPREX [Concomitant]
  14. LASIX [Concomitant]
  15. SPIRONOLACTONE [Concomitant]
  16. PEGINTERFERON ALFA-2B W/RIBAVIRIN (PEGYLATED INTERFERON ALFA-2B W/RIBA [Suspect]
     Indication: HEPATITIS C
     Dosage: 150 MG, QW, SC; 120 MCG, QW, SC
     Route: 058
     Dates: start: 20100817
  17. RIBAVIRIN [Suspect]
     Indication: HEPATITIS C
     Dosage: 1400 MG, QD, PO; 800 MG, QD, PO
     Route: 048
     Dates: start: 20100817
  18. POLYSPORIN OINTMENT [Concomitant]
  19. BOCEPREVIR (SCH-503034) [Suspect]
     Dosage: 800 MG, TID, PO; 600 MG, TID, PO
     Route: 048
     Dates: start: 20100914
  20. IBUPROFEN [Concomitant]
  21. CITALOPRAM HYDROBROMIDE [Concomitant]

REACTIONS (6)
  - OEDEMA [None]
  - ABDOMINAL DISTENSION [None]
  - ANAEMIA [None]
  - BLOOD ALBUMIN DECREASED [None]
  - ASCITES [None]
  - SCROTAL SWELLING [None]
